FAERS Safety Report 6271572-X (Version None)
Quarter: 2009Q3

REPORT INFORMATION
  Report Type: 
  Country: None (occurrence: None)
  Receive Date: 20090713
  Receipt Date: 20080630
  Transmission Date: 20100115
  Serious: Yes (Other)
  Sender: FDA-Public Use
  Company Number: 50168

PATIENT
  Age: 67 Year
  Sex: Male

DRUGS (1)
  1. DACARBAZINE [Suspect]
     Indication: MALIGNANT MELANOMA
     Dosage: SOMETIME IN JUNE 2008
     Dates: start: 20080101

REACTIONS (1)
  - PARAESTHESIA [None]
